FAERS Safety Report 6021403-8 (Version None)
Quarter: 2008Q4

REPORT INFORMATION
  Report Type: 
  Country: None (occurrence: None)
  Receive Date: 20081229
  Receipt Date: 20081222
  Transmission Date: 20090506
  Serious: Yes (Hospitalization)
  Sender: FDA-Public Use
  Company Number: B0551499A

PATIENT
  Age: 58 Year
  Sex: Male

DRUGS (6)
  1. RELENZA [Suspect]
     Indication: INFLUENZA
     Dosage: 10MG TWICE PER DAY
     Route: 055
     Dates: start: 20081105, end: 20081110
  2. SAWACILLIN [Concomitant]
     Route: 048
     Dates: start: 20081105
  3. VOLTAREN [Concomitant]
     Route: 065
     Dates: start: 20081105
  4. ASPIRIN [Concomitant]
     Route: 048
  5. NORVASC [Concomitant]
     Route: 048
  6. LOSARTAN POTASSIUM [Concomitant]
     Route: 048

REACTIONS (2)
  - RASH [None]
  - STEVENS-JOHNSON SYNDROME [None]
